FAERS Safety Report 18935069 (Version 1)
Quarter: 2021Q1

REPORT INFORMATION
  Report Type: Spontaneous
  Country: US (occurrence: US)
  Receive Date: 20210224
  Receipt Date: 20210224
  Transmission Date: 20210420
  Serious: Yes (Other)
  Sender: FDA-Public Use
  Company Number: US-TERSERA THERAPEUTICS LLC-2020TRS001072

PATIENT

DRUGS (4)
  1. PRIALT [Suspect]
     Active Substance: ZICONOTIDE ACETATE
     Dosage: UNK (SECOND DOSE, MORE CONCENTRATED DOSE)
     Route: 037
  2. PRIALT [Suspect]
     Active Substance: ZICONOTIDE ACETATE
     Dosage: UNK (LOWERED DOSE, 2ND STRENGTH)
     Route: 037
     Dates: start: 20200512
  3. MARCAINE [Suspect]
     Active Substance: BUPIVACAINE HYDROCHLORIDE
     Indication: PRODUCT USED FOR UNKNOWN INDICATION
     Dosage: UNK
     Route: 037
  4. PRIALT [Suspect]
     Active Substance: ZICONOTIDE ACETATE
     Indication: COMPLEX REGIONAL PAIN SYNDROME
     Dosage: UNK
     Route: 037
     Dates: start: 202003

REACTIONS (15)
  - Hallucination, olfactory [Unknown]
  - Condition aggravated [Not Recovered/Not Resolved]
  - Pain [Unknown]
  - Influenza like illness [Unknown]
  - Burning sensation [Recovering/Resolving]
  - Off label use [Unknown]
  - Peripheral swelling [Not Recovered/Not Resolved]
  - Genital dysaesthesia [Unknown]
  - Vulvovaginal burning sensation [Unknown]
  - Stomatitis [Unknown]
  - Oral mucosal exfoliation [Unknown]
  - Somnolence [Unknown]
  - Overdose [Unknown]
  - Paraesthesia [Unknown]
  - Feeling cold [Unknown]
